FAERS Safety Report 23571944 (Version 1)
Quarter: 2024Q1

REPORT INFORMATION
  Report Type: Spontaneous
  Country: CN (occurrence: CN)
  Receive Date: 20240227
  Receipt Date: 20240227
  Transmission Date: 20240410
  Serious: Yes (Other)
  Sender: FDA-Public Use
  Company Number: CN-MYLANLABS-2024M1017956

PATIENT
  Age: 14 Year
  Sex: Female
  Weight: 51 kg

DRUGS (3)
  1. ZOLOFT [Suspect]
     Active Substance: SERTRALINE HYDROCHLORIDE
     Indication: Intentional self-injury
     Dosage: 20 DOSAGE FORM, QD
     Route: 048
     Dates: start: 20231227, end: 20231227
  2. LORAZEPAM [Suspect]
     Active Substance: LORAZEPAM
     Indication: Intentional self-injury
     Dosage: 16 DOSAGE FORM, QD
     Route: 048
     Dates: start: 20231227, end: 20231227
  3. FLUOXETINE HYDROCHLORIDE [Suspect]
     Active Substance: FLUOXETINE HYDROCHLORIDE
     Indication: Intentional self-injury
     Dosage: 14 DOSAGE FORM, QD
     Route: 048
     Dates: start: 20231227, end: 20231227

REACTIONS (2)
  - Toxicity to various agents [Recovering/Resolving]
  - Gastrointestinal disorder [Recovering/Resolving]

NARRATIVE: CASE EVENT DATE: 20231227
